FAERS Safety Report 7554792-3 (Version None)
Quarter: 2011Q2

REPORT INFORMATION
  Report Type: 
  Country: None (occurrence: None)
  Receive Date: 20110617
  Receipt Date: 20110613
  Transmission Date: 20111010
  Serious: Yes (Hospitalization, Disabling)
  Sender: FDA-Public Use
  Company Number: MX-BRISTOL-MYERS SQUIBB COMPANY-14465009

PATIENT
  Age: 76 Year
  Sex: Female

DRUGS (5)
  1. WARFARIN SODIUM [Suspect]
     Indication: THROMBOSIS PROPHYLAXIS
     Route: 048
     Dates: start: 20081008, end: 20090122
  2. PLACEBO [Suspect]
     Indication: THROMBOSIS PROPHYLAXIS
     Dosage: APIXABAN:10 MG WARFARIN: 2 MG
     Route: 048
     Dates: start: 20081008, end: 20090122
  3. FUROSEMIDE [Concomitant]
     Dates: start: 20060101
  4. METOPROLOL TARTRATE [Concomitant]
     Dates: start: 20060101
  5. ENALAPRIL MALEATE [Concomitant]
     Dates: start: 20060101

REACTIONS (2)
  - HAEMORRHAGIC STROKE [None]
  - ISCHAEMIC STROKE [None]
